FAERS Safety Report 17665060 (Version 4)
Quarter: 2020Q2

REPORT INFORMATION
  Report Type: Spontaneous
  Country: DE (occurrence: DE)
  Receive Date: 20200414
  Receipt Date: 20200527
  Transmission Date: 20200713
  Serious: Yes (Life-Threatening, Hospitalization, Other)
  Sender: FDA-Public Use
  Company Number: DE-ACCORD-178624

PATIENT
  Age: 69 Year
  Sex: Male
  Weight: 77 kg

DRUGS (13)
  1. RAMIPRIL. [Interacting]
     Active Substance: RAMIPRIL
     Indication: HYPERTENSION
     Dosage: 1-0-1 STRENGTH 5 MG
     Dates: start: 201808
  2. INSULIN GLARGINE [Interacting]
     Active Substance: INSULIN GLARGINE
     Indication: DIABETES MELLITUS
     Dosage: 15 IU IN THE EVENING
     Dates: start: 201808
  3. CARVEDILOL/CARVEDILOL HYDROCHLODRIDE [Interacting]
     Active Substance: CARVEDILOL HYDROCHLORIDE
     Indication: CARDIAC DISORDER
     Dosage: 1-0-1 STRENGTH 25
     Dates: start: 201808
  4. AMLODIPINE [Interacting]
     Active Substance: AMLODIPINE BESYLATE
     Indication: HYPERTENSION
     Dosage: 1-0-1 STRENGTH 5 MG
     Dates: start: 201808
  5. SPIRONOLACTONE. [Interacting]
     Active Substance: SPIRONOLACTONE
     Indication: CARDIAC DISORDER
     Dosage: 1-0-0 STRENGTH 50 MG
     Dates: start: 201808
  6. ELIQUIS [Interacting]
     Active Substance: APIXABAN
     Indication: ATRIAL FIBRILLATION
     Dosage: 1-0-1 STRENGTH 5 MG
     Dates: start: 201808
  7. JANUMET [Interacting]
     Active Substance: METFORMIN HYDROCHLORIDE\SITAGLIPTIN PHOSPHATE
     Indication: DIABETES MELLITUS
     Dosage: 1-0-1   50/1000MG
     Dates: start: 201808
  8. MILGAMMA PROTEKT [Interacting]
     Active Substance: BENFOTIAMINE
     Indication: CARDIOVASCULAR DISORDER
     Dosage: 1 STRENGTH 300 MG
     Dates: start: 201808
  9. TORASEMIDE/TORASEMIDE SODIUM [Interacting]
     Active Substance: TORSEMIDE
     Indication: RENAL DISORDER
     Dosage: 1-0-0 STRENGTH 10 MG
     Dates: start: 201808
  10. ALLOPURINOL. [Suspect]
     Active Substance: ALLOPURINOL
     Indication: GOUT
     Dosage: ALLOPURINOL 100 MG
     Dates: start: 201808
  11. PROCORALAN [Interacting]
     Active Substance: IVABRADINE
     Indication: CARDIAC DISORDER
     Dosage: 1-0-0 STRENGTH 7.5 MG
     Dates: start: 201808
  12. SIMVASTATIN. [Interacting]
     Active Substance: SIMVASTATIN
     Indication: PRODUCT USED FOR UNKNOWN INDICATION
     Dosage: 0-0-1 40 MG
     Dates: start: 201808
  13. AVASTIN [Interacting]
     Active Substance: BEVACIZUMAB
     Indication: DIABETIC RETINAL OEDEMA
     Dosage: INJECT INTO THE RIGHT EYE AT 13.30
     Route: 031
     Dates: start: 20200115

REACTIONS (4)
  - Eye movement disorder [Recovered/Resolved]
  - Drug interaction [Unknown]
  - Seizure [Recovered/Resolved]
  - Movement disorder [Recovered/Resolved]

NARRATIVE: CASE EVENT DATE: 20200115
